FAERS Safety Report 10264518 (Version 1)
Quarter: 2014Q2

REPORT INFORMATION
  Report Type: Spontaneous
  Country: US (occurrence: None)
  Receive Date: 20140625
  Receipt Date: 20140625
  Transmission Date: 20141212
  Serious: Yes (Death)
  Sender: FDA-Public Use
  Company Number: None

PATIENT
  Age: 70 Year
  Sex: Male

DRUGS (2)
  1. IPILIMUMAB [Suspect]
     Indication: MALIGNANT MELANOMA
     Dosage: THERAPY DATES?2/26/14-3/19; 4/9; 4/30??3MG.KG EVERY 3WKS X4; IV
     Route: 042
     Dates: start: 20140226
  2. RADIATION THERAPY [Suspect]
     Dosage: CGY
     Dates: start: 20140224

REACTIONS (14)
  - Fatigue [None]
  - Asthenia [None]
  - Confusional state [None]
  - Anaemia [None]
  - Intraventricular haemorrhage [None]
  - Appetite disorder [None]
  - Urine output decreased [None]
  - Dysuria [None]
  - Myalgia [None]
  - Back pain [None]
  - Gait disturbance [None]
  - Speech disorder [None]
  - Contusion [None]
  - Tachycardia [None]
